FAERS Safety Report 8906185 (Version 1)
Quarter: 2012Q4

REPORT INFORMATION
  Report Type: Spontaneous
  Country: US (occurrence: None)
  Receive Date: 20121112
  Receipt Date: 20121112
  Transmission Date: 20130627
  Serious: No
  Sender: FDA-Public Use
  Company Number: None

PATIENT
  Sex: Female
  Weight: 54.4 kg

DRUGS (4)
  1. VIMPAT [Suspect]
     Indication: EPILEPSY
     Route: 048
     Dates: start: 20100219, end: 201010
  2. CARBAMAZEPINE [Concomitant]
  3. LAMOTRIGINE [Concomitant]
  4. CITALOPRAM [Concomitant]

REACTIONS (3)
  - Rash [None]
  - Rash [None]
  - Cheilitis [None]
